FAERS Safety Report 4456817-0 (Version None)
Quarter: 2004Q3

REPORT INFORMATION
  Report Type: 
  Country: None (occurrence: None)
  Receive Date: 20040921
  Receipt Date: 20040909
  Transmission Date: 20050211
  Serious: Yes (Other)
  Sender: FDA-Public Use
  Company Number: HQWYE984010SEP04

PATIENT
  Sex: Male

DRUGS (6)
  1. TAZOCIN (PIPERACILLIN/TAZOBACTAM) [Suspect]
     Indication: INFECTION
     Dosage: 4.5 G 3X PER 1 DAY
     Dates: start: 20040209, end: 20040210
  2. CIPROFLOXACIN [Suspect]
     Indication: INFECTION PROPHYLAXIS
     Dosage: 400 MG 2X PER 1 DAY
     Route: 048
     Dates: start: 20040209, end: 20040209
  3. NORADRENALINE (NOREPINEPHRINE) [Concomitant]
  4. PROPOFOL [Concomitant]
  5. METOCLOPRAMIDE [Concomitant]
  6. MORPHINE SULFATE [Concomitant]

REACTIONS (1)
  - HEPATOTOXICITY [None]
